FAERS Safety Report 17008679 (Version 5)
Quarter: 2020Q1

REPORT INFORMATION
  Report Type: Spontaneous
  Country: US (occurrence: US)
  Receive Date: 20191108
  Receipt Date: 20200310
  Transmission Date: 20200409
  Serious: Yes (Other)
  Sender: FDA-Public Use
  Company Number: US-BAYER-2019-202122

PATIENT
  Age: 44 Year
  Sex: Female
  Weight: 63.4 kg

DRUGS (2)
  1. KYLEENA [Suspect]
     Active Substance: LEVONORGESTREL
     Indication: CONTRACEPTION
     Dosage: 17.5 ?G PER DAY CONTINUOUSLY
     Route: 015
     Dates: start: 20190220, end: 20191029
  2. KYLEENA [Suspect]
     Active Substance: LEVONORGESTREL
     Indication: MENORRHAGIA

REACTIONS (5)
  - Device dislocation [Recovered/Resolved]
  - Pelvic pain [Recovered/Resolved]
  - Abdominal pain lower [Recovered/Resolved]
  - Polymenorrhagia [None]
  - Drug ineffective [None]

NARRATIVE: CASE EVENT DATE: 2019
